FAERS Safety Report 19007114 (Version 1)
Quarter: 2021Q1

REPORT INFORMATION
  Report Type: Spontaneous
  Country: US (occurrence: US)
  Receive Date: 20210312
  Receipt Date: 20210312
  Transmission Date: 20210420
  Serious: No
  Sender: FDA-Public Use
  Company Number: None

PATIENT
  Age: 48 Year
  Sex: Male
  Weight: 113.85 kg

DRUGS (2)
  1. BAMLANIVIMAB. [Suspect]
     Active Substance: BAMLANIVIMAB
     Indication: COVID-19
     Dosage: ?          OTHER FREQUENCY:ONCE;?
     Route: 041
     Dates: start: 20210306, end: 20210306
  2. REMDESIVIR. [Concomitant]
     Active Substance: REMDESIVIR
     Dates: start: 20210302, end: 20210307

REACTIONS (7)
  - Dyspnoea [None]
  - Hypogammaglobulinaemia [None]
  - Pyrexia [None]
  - Fatigue [None]
  - Polymerase chain reaction positive [None]
  - Pulmonary hypertension [None]
  - Respiratory failure [None]

NARRATIVE: CASE EVENT DATE: 20210306
